FAERS Safety Report 6126577-6 (Version None)
Quarter: 2009Q1

REPORT INFORMATION
  Report Type: 
  Country: None (occurrence: None)
  Receive Date: 20090320
  Receipt Date: 20090310
  Transmission Date: 20090719
  Serious: Yes (Other)
  Sender: FDA-Public Use
  Company Number: US-PFIZER INC-2006040309

PATIENT
  Sex: Female

DRUGS (8)
  1. PROVERA [Suspect]
     Indication: HORMONE REPLACEMENT THERAPY
     Dosage: UNK MG, UNK
     Route: 048
     Dates: start: 19880101, end: 20000101
  2. PROVERA [Suspect]
     Indication: MENOPAUSAL SYMPTOMS
  3. PREMARIN [Suspect]
     Indication: HORMONE REPLACEMENT THERAPY
     Dosage: 9 MG, UNK
     Route: 065
     Dates: start: 19890101, end: 19980101
  4. PREMARIN [Suspect]
     Indication: MENOPAUSAL SYMPTOMS
     Dosage: 9 MG, UNK
     Dates: start: 19940101, end: 20000101
  5. DICYCLOMINE [Concomitant]
     Dosage: 10 MG, UNK
     Dates: start: 19960101
  6. ACETYLSALICYLIC ACID [Concomitant]
     Dosage: 81 MG, UNK
     Dates: start: 19990101
  7. PRAVASTATIN [Concomitant]
     Dosage: UNK
     Dates: start: 19990101, end: 20040101
  8. NIZATIDINE [Concomitant]
     Dosage: 150 MG, UNK
     Dates: start: 19960101

REACTIONS (1)
  - BREAST CANCER [None]
